FAERS Safety Report 21232206 (Version 1)
Quarter: 2022Q3

REPORT INFORMATION
  Report Type: Spontaneous
  Country: US (occurrence: None)
  Receive Date: 20220818
  Receipt Date: 20220818
  Transmission Date: 20221027
  Serious: Yes (unspecified)
  Sender: FDA-Public Use
  Company Number: None

PATIENT
  Age: 29 Year
  Sex: Female
  Weight: 82.35 kg

DRUGS (2)
  1. NEXPLANON [Suspect]
     Active Substance: ETONOGESTREL
     Indication: Contraception
     Dates: start: 20220803, end: 20220818
  2. NEXPLANON [Concomitant]
     Active Substance: ETONOGESTREL
     Dates: start: 20220803, end: 20220818

REACTIONS (3)
  - Implant site pain [None]
  - Implant site oedema [None]
  - Implant site erythema [None]

NARRATIVE: CASE EVENT DATE: 20220818
